FAERS Safety Report 17472246 (Version 1)
Quarter: 2020Q1

REPORT INFORMATION
  Report Type: Spontaneous
  Country: GB (occurrence: GB)
  Receive Date: 20200228
  Receipt Date: 20200228
  Transmission Date: 20200409
  Serious: Yes (Hospitalization)
  Sender: FDA-Public Use
  Company Number: GB-ACCORD-173827

PATIENT
  Age: 43 Year
  Sex: Female
  Weight: 76.2 kg

DRUGS (1)
  1. METHOTREXATE. [Suspect]
     Active Substance: METHOTREXATE
     Indication: PRODUCT USED FOR UNKNOWN INDICATION
     Dosage: NOT SURE
     Route: 051
     Dates: start: 20150101, end: 20180401

REACTIONS (6)
  - Nausea [Recovered/Resolved]
  - Alopecia [Recovered/Resolved]
  - Muscular weakness [Recovered/Resolved]
  - Abnormal loss of weight [Recovered/Resolved]
  - Vomiting [Recovered/Resolved]
  - Fatigue [Recovered/Resolved]

NARRATIVE: CASE EVENT DATE: 20150101
